FAERS Safety Report 26030450 (Version 1)
Quarter: 2025Q4

REPORT INFORMATION
  Report Type: Spontaneous
  Country: US (occurrence: US)
  Receive Date: 20251112
  Receipt Date: 20251112
  Transmission Date: 20260118
  Serious: No
  Sender: SANOFI AVENTIS
  Company Number: US-SA-2025SA333781

PATIENT
  Sex: Female
  Weight: 73.64 kg

DRUGS (6)
  1. DUPIXENT [Suspect]
     Active Substance: DUPILUMAB
     Indication: Neurodermatitis
     Dosage: 300 MG, QOW
     Route: 058
  2. MONTELUKAST SODIUM [Concomitant]
     Active Substance: MONTELUKAST SODIUM
  3. MINERALS\VITAMINS [Concomitant]
     Active Substance: MINERALS\VITAMINS
  4. TOPAMAX [Concomitant]
     Active Substance: TOPIRAMATE
  5. TRIAMCINOLONE ACETONIDE [Concomitant]
     Active Substance: TRIAMCINOLONE ACETONIDE
  6. LEFLUNOMIDE [Concomitant]
     Active Substance: LEFLUNOMIDE

REACTIONS (2)
  - Skin discolouration [Unknown]
  - Skin exfoliation [Unknown]
